FAERS Safety Report 9366728 (Version 1)
Quarter: 2013Q2

REPORT INFORMATION
  Report Type: Not Available
  Country: FI (occurrence: FI)
  Receive Date: 20130625
  Receipt Date: 20130625
  Transmission Date: 20140414
  Serious: Yes (Disabling)
  Sender: FDA-Public Use
  Company Number: FI-PURDUE-GBR-2013-0014575

PATIENT
  Age: 74 Year
  Sex: Male

DRUGS (8)
  1. NORSPAN [Suspect]
     Indication: NECK PAIN
     Dosage: 10 MCG, Q1H
     Route: 062
     Dates: start: 20130429, end: 20130523
  2. MAREVAN [Concomitant]
     Indication: ARRHYTHMIA
     Dosage: 5 MG, DAILY
     Route: 048
  3. PANADOL                            /00020001/ [Concomitant]
     Indication: PAIN
     Dosage: 1 G, TID
     Route: 048
  4. BISOPROLOL [Concomitant]
     Indication: ARRHYTHMIA
     Dosage: 5 MG, DAILY
     Route: 048
  5. OMEPRAZOL                          /00661201/ [Concomitant]
     Indication: GASTRIC PH DECREASED
     Dosage: 40 MG, DAILY
     Route: 048
  6. KLOTRIPTYL                         /00033501/ [Concomitant]
     Indication: PAIN
     Dosage: 1 TABLET, DAILY
     Route: 048
  7. BETASERC                           /00141801/ [Concomitant]
     Indication: DIZZINESS
     Dosage: 24 MG, BID
  8. NITRO                              /00003201/ [Concomitant]
     Dosage: 2 TABLET, PRN, (2-3 MINUTES INTERVAL)
     Route: 060

REACTIONS (9)
  - Delirium [Recovered/Resolved]
  - Personality change [Recovered/Resolved]
  - Abnormal behaviour [Recovered/Resolved]
  - Insomnia [Recovered/Resolved]
  - Speech disorder [Recovered/Resolved]
  - Depressed mood [Recovered/Resolved]
  - Confusional state [Recovered/Resolved]
  - Memory impairment [Recovered/Resolved]
  - Drug ineffective [Unknown]
